FAERS Safety Report 9169052 (Version 9)
Quarter: 2018Q2

REPORT INFORMATION
  Report Type: Spontaneous
  Country: US (occurrence: US)
  Receive Date: 20130318
  Receipt Date: 20180510
  Transmission Date: 20180711
  Serious: Yes (Hospitalization, Other)
  Sender: FDA-Public Use
  Company Number: US-GLAXOSMITHKLINE-A0916968A

PATIENT
  Sex: Female

DRUGS (13)
  1. ASPIRIN. [Concomitant]
     Active Substance: ASPIRIN
  2. PREDNISONE. [Suspect]
     Active Substance: PREDNISONE
     Indication: PRODUCT USED FOR UNKNOWN INDICATION
     Dosage: 40MG UNKNOWN DOSING, REDUCED DOSE TO 20 MG
     Dates: start: 2013
  3. KLONOPIN [Concomitant]
     Active Substance: CLONAZEPAM
  4. PLAVIX [Suspect]
     Active Substance: CLOPIDOGREL BISULFATE
     Dosage: 75 MG, QD
     Route: 048
  5. LAMICTAL [Suspect]
     Active Substance: LAMOTRIGINE
     Indication: SEIZURE
     Dosage: 200 MG
     Route: 048
     Dates: start: 199508
  6. DIOVAN [Concomitant]
     Active Substance: VALSARTAN
  7. CLONAZEPAM. [Concomitant]
     Active Substance: CLONAZEPAM
  8. SIMVASTATIN. [Concomitant]
     Active Substance: SIMVASTATIN
  9. LAMICTAL [Suspect]
     Active Substance: LAMOTRIGINE
     Dosage: 100 MG, TID
     Route: 048
  10. PLAVIX [Suspect]
     Active Substance: CLOPIDOGREL BISULFATE
     Dosage: ONE TABLET ALTERNATE DAYS
     Route: 065
  11. KEPPRA [Concomitant]
     Active Substance: LEVETIRACETAM
  12. LAMICTAL XR [Suspect]
     Active Substance: LAMOTRIGINE
     Indication: SEIZURE
     Dosage: 100 MG IN THE MORNING AND 200 MG IN THE EVENING
     Route: 048
     Dates: start: 201404
  13. METOPROLOL. [Concomitant]
     Active Substance: METOPROLOL

REACTIONS (34)
  - Loss of consciousness [Recovered/Resolved]
  - Daydreaming [Unknown]
  - Large intestine polyp [Recovered/Resolved]
  - Skin discolouration [Unknown]
  - Drug administration error [Unknown]
  - Dizziness [Unknown]
  - Myocardial infarction [Recovered/Resolved]
  - Coma [Unknown]
  - Clavicle fracture [Unknown]
  - Balance disorder [Not Recovered/Not Resolved]
  - Head injury [Unknown]
  - Fall [Unknown]
  - Dyspnoea [Unknown]
  - Parosmia [Unknown]
  - Nervousness [Unknown]
  - Euphoric mood [Unknown]
  - Upper limb fracture [Unknown]
  - Drug dispensing error [Unknown]
  - Large intestinal ulcer [Recovered/Resolved]
  - Intervertebral disc injury [Not Recovered/Not Resolved]
  - Adverse event [Recovered/Resolved]
  - Wrong drug administered [Unknown]
  - Somnolence [Recovered/Resolved]
  - Feeling abnormal [Unknown]
  - Sinusitis [Unknown]
  - Granuloma [Recovered/Resolved]
  - Stent placement [Recovered/Resolved]
  - Seizure [Unknown]
  - Amnesia [Not Recovered/Not Resolved]
  - Contusion [Recovering/Resolving]
  - Hypoaesthesia [Not Recovered/Not Resolved]
  - Drug effect increased [Unknown]
  - Intervertebral disc degeneration [Unknown]
  - Confusional state [Unknown]

NARRATIVE: CASE EVENT DATE: 2007
